FAERS Safety Report 16884762 (Version 2)
Quarter: 2019Q4

REPORT INFORMATION
  Report Type: Spontaneous
  Country: US (occurrence: US)
  Receive Date: 20191004
  Receipt Date: 20191010
  Transmission Date: 20200122
  Serious: No
  Sender: FDA-Public Use
  Company Number: US-HORIZON-RAV-0306-2019

PATIENT
  Age: 8 Day
  Sex: Female

DRUGS (2)
  1. RAVICTI [Suspect]
     Active Substance: GLYCEROL PHENYLBUTYRATE
     Indication: ARGININOSUCCINATE SYNTHETASE DEFICIENCY
     Dosage: 0.3ML PO TID
     Route: 048
     Dates: start: 20190927
  2. L-ARGININE [Concomitant]
     Active Substance: ARGININE

REACTIONS (5)
  - Dyspnoea [Unknown]
  - Wheezing [Unknown]
  - Skin discolouration [Unknown]
  - Congenital naevus [Unknown]
  - Constipation [Unknown]

NARRATIVE: CASE EVENT DATE: 20190928
